FAERS Safety Report 6537551-X (Version None)
Quarter: 2010Q1

REPORT INFORMATION
  Report Type: 
  Country: None (occurrence: None)
  Receive Date: 20100114
  Receipt Date: 20100111
  Transmission Date: 20100710
  Serious: Yes (Hospitalization, Other)
  Sender: FDA-Public Use
  Company Number: US-BAYER-200915414BCC

PATIENT
  Age: 31 Year
  Sex: Female
  Weight: 82 kg

DRUGS (4)
  1. ALEVE PM [Suspect]
     Indication: PAIN
     Route: 048
  2. REBIF [Suspect]
     Indication: MULTIPLE SCLEROSIS
     Dosage: TOTAL DAILY DOSE: 44 ?G  UNIT DOSE: 44 ?G
     Route: 058
     Dates: start: 20090406
  3. PROZAC [Concomitant]
     Route: 065
  4. KLONOPIN [Concomitant]
     Route: 065

REACTIONS (8)
  - DEPRESSION [None]
  - DRUG DOSE OMISSION [None]
  - GASTRIC ULCER HAEMORRHAGE [None]
  - HAEMATEMESIS [None]
  - OESOPHAGEAL ULCER HAEMORRHAGE [None]
  - PAIN IN EXTREMITY [None]
  - SLEEP DISORDER [None]
  - SUICIDAL IDEATION [None]
